FAERS Safety Report 16033574 (Version 1)
Quarter: 2019Q1

REPORT INFORMATION
  Report Type: Spontaneous
  Country: US (occurrence: US)
  Receive Date: 20190305
  Receipt Date: 20190305
  Transmission Date: 20190418
  Serious: No
  Sender: FDA-Public Use
  Company Number: US-IMPAX LABORATORIES, LLC-2018-IPXL-02419

PATIENT
  Age: 66 Year
  Sex: Male
  Weight: 81 kg

DRUGS (18)
  1. RANEXA [Concomitant]
     Active Substance: RANOLAZINE
     Indication: ANGINA PECTORIS
     Dosage: 1000 MG, 2 /DAY
     Route: 065
  2. SPIRONOLACTONE. [Concomitant]
     Active Substance: SPIRONOLACTONE
     Indication: CARDIOVASCULAR EVENT PROPHYLAXIS
     Dosage: 25 MG, 1 /DAY
     Route: 048
  3. OMEGA 3 [Concomitant]
     Active Substance: OMEGA-3 FATTY ACIDS
     Indication: CARDIOVASCULAR EVENT PROPHYLAXIS
     Dosage: 400 MG, 2 /DAY
     Route: 065
  4. SLO-NIACIN [Concomitant]
     Active Substance: NIACIN
     Indication: BLOOD CHOLESTEROL ABNORMAL
     Dosage: 500 MG, 2 /DAY
     Route: 065
  5. OMEPRAZOLE. [Concomitant]
     Active Substance: OMEPRAZOLE
     Indication: DYSPEPSIA
     Dosage: 20 MG, 1 /DAY
     Route: 065
  6. DESMOPRESSIN [Concomitant]
     Active Substance: DESMOPRESSIN
     Indication: BLADDER DISORDER
     Dosage: 0.2 MG, TWO AT BEDTIME
     Route: 065
  7. LOSARTAN. [Concomitant]
     Active Substance: LOSARTAN
     Indication: BLOOD PRESSURE ABNORMAL
     Dosage: 25 MG, 1 /DAY
     Route: 065
  8. CRESTOR [Concomitant]
     Active Substance: ROSUVASTATIN CALCIUM
     Indication: BLOOD CHOLESTEROL ABNORMAL
     Dosage: 20 MG, (HALF OF 40 MG IN THE EVENING)
     Route: 065
  9. FLUOXETINE [Concomitant]
     Active Substance: FLUOXETINE HYDROCHLORIDE
     Indication: DEPRESSION
     Dosage: 40 MG, 1 /DAY
     Route: 065
  10. NITROGLYCERIN. [Concomitant]
     Active Substance: NITROGLYCERIN
     Indication: CARDIOVASCULAR EVENT PROPHYLAXIS
     Dosage: 0.4 MG, IF NEEDED AND AS DIRECTED
     Route: 060
  11. RYTARY [Suspect]
     Active Substance: CARBIDOPA\LEVODOPA
     Indication: PARKINSON^S DISEASE
     Dosage: 23.75/95 MG, FOUR TIMES A DAY (AT 8-9 AM, 1-1:45 PM, AROUND 6 PM, 10:15-10:30 PM)
     Route: 048
     Dates: start: 20180707
  12. CARBIDOPA-LEVODOPA ER [Suspect]
     Active Substance: CARBIDOPA\LEVODOPA
     Indication: PARKINSON^S DISEASE
     Dosage: UNK
     Route: 065
  13. OMEPRAZOLE. [Concomitant]
     Active Substance: OMEPRAZOLE
     Indication: DYSPEPSIA
  14. ASPIRIN. [Concomitant]
     Active Substance: ASPIRIN
     Indication: PROPHYLAXIS
     Dosage: 81 MG, 2 /DAY
     Route: 065
  15. LORATADINE. [Concomitant]
     Active Substance: LORATADINE
     Indication: SEASONAL ALLERGY
     Dosage: 10 MG, TWICE DAILY AS NEEDED
     Route: 065
  16. TAMSULOSIN [Concomitant]
     Active Substance: TAMSULOSIN
     Indication: BLADDER DISORDER
     Dosage: 0.4 MG (SUSTAINED RELEASE), DAILY
     Route: 065
  17. COENZYME Q10 [Concomitant]
     Active Substance: UBIDECARENONE
     Indication: CARDIAC DISORDER
     Dosage: 100 MG, 2 /DAY
     Route: 065
  18. BISOPROLOL FUMARATE. [Concomitant]
     Active Substance: BISOPROLOL FUMARATE
     Indication: CARDIAC DISORDER
     Dosage: 5 MG (HALF OF 10 MG IN THE EVENING)
     Route: 065

REACTIONS (7)
  - Trismus [Recovering/Resolving]
  - Balance disorder [Recovering/Resolving]
  - Feeling abnormal [Recovering/Resolving]
  - Tremor [Recovering/Resolving]
  - Malaise [Recovering/Resolving]
  - Intentional product use issue [Unknown]
  - Drug effect delayed [Recovering/Resolving]

NARRATIVE: CASE EVENT DATE: 201807
